FAERS Safety Report 14367177 (Version 1)
Quarter: 2018Q1

REPORT INFORMATION
  Report Type: Spontaneous
  Country: US (occurrence: US)
  Receive Date: 20180109
  Receipt Date: 20180109
  Transmission Date: 20180509
  Serious: No
  Sender: FDA-Public Use
  Company Number: US-JNJFOC-20170100357

PATIENT
  Age: 33 Year
  Sex: Female

DRUGS (8)
  1. TYLENOL [Suspect]
     Active Substance: ACETAMINOPHEN
     Indication: CHILLS
     Route: 048
     Dates: start: 2013
  2. IBUPROFEN. [Suspect]
     Active Substance: IBUPROFEN
     Indication: CHILLS
     Route: 048
     Dates: start: 2013
  3. TYLENOL [Suspect]
     Active Substance: ACETAMINOPHEN
     Indication: HYPERHIDROSIS
     Route: 048
     Dates: start: 2013
  4. IBUPROFEN. [Suspect]
     Active Substance: IBUPROFEN
     Indication: FLUSHING
     Route: 048
     Dates: start: 2013
  5. TYLENOL [Suspect]
     Active Substance: ACETAMINOPHEN
     Indication: GASTROOESOPHAGEAL REFLUX DISEASE
     Route: 048
     Dates: start: 2013
  6. TYLENOL [Suspect]
     Active Substance: ACETAMINOPHEN
     Indication: FLUSHING
     Route: 048
     Dates: start: 2013
  7. IBUPROFEN. [Suspect]
     Active Substance: IBUPROFEN
     Indication: HYPERHIDROSIS
     Route: 048
     Dates: start: 2013
  8. IBUPROFEN. [Suspect]
     Active Substance: IBUPROFEN
     Indication: GASTROOESOPHAGEAL REFLUX DISEASE
     Route: 048
     Dates: start: 2013

REACTIONS (1)
  - Drug ineffective for unapproved indication [Unknown]

NARRATIVE: CASE EVENT DATE: 2013
